FAERS Safety Report 19490414 (Version 1)
Quarter: 2021Q3

REPORT INFORMATION
  Report Type: Spontaneous
  Country: US (occurrence: US)
  Receive Date: 20210705
  Receipt Date: 20210705
  Transmission Date: 20211014
  Serious: Yes (Other)
  Sender: FDA-Public Use
  Company Number: US-MACLEODS PHARMACEUTICALS US LTD-MAC2021031698

PATIENT

DRUGS (25)
  1. QUETIAPINE. [Suspect]
     Active Substance: QUETIAPINE
     Indication: ANXIETY
  2. DESVENLAFAXINE. [Suspect]
     Active Substance: DESVENLAFAXINE
     Indication: ANXIETY
     Dosage: UNK
     Route: 065
  3. ETHINYLESTRADIOL/ETONOGESTREL [Suspect]
     Active Substance: ETHINYL ESTRADIOL\ETONOGESTREL
     Indication: PERSISTENT GENITAL AROUSAL DISORDER
     Dosage: UNK, RING
     Route: 065
  4. TRAZODONE [Suspect]
     Active Substance: TRAZODONE HYDROCHLORIDE
     Indication: ANXIETY
     Dosage: UNK
     Route: 065
  5. LURASIDONE [Suspect]
     Active Substance: LURASIDONE
     Indication: DEPRESSION
     Dosage: 20 MILLIGRAM
     Route: 065
  6. AMITRIPTYLINE [Suspect]
     Active Substance: AMITRIPTYLINE
     Indication: DEPRESSION
  7. VILAZODONE [Suspect]
     Active Substance: VILAZODONE
     Indication: DEPRESSION
  8. VENLAFAXINE [Suspect]
     Active Substance: VENLAFAXINE HYDROCHLORIDE
     Indication: DEPRESSION
  9. BUPROPION. [Suspect]
     Active Substance: BUPROPION
     Indication: ANXIETY
     Dosage: UNK
     Route: 065
  10. BUPROPION. [Suspect]
     Active Substance: BUPROPION
     Indication: DEPRESSION
  11. ALPRAZOLAM. [Suspect]
     Active Substance: ALPRAZOLAM
     Indication: DEPRESSION
  12. TRAMADOL. [Concomitant]
     Active Substance: TRAMADOL
     Indication: PRODUCT USED FOR UNKNOWN INDICATION
     Dosage: UNK
     Route: 065
  13. QUETIAPINE. [Suspect]
     Active Substance: QUETIAPINE
     Indication: DEPRESSION
     Dosage: UNK
     Route: 065
  14. FLUOXETINE [Suspect]
     Active Substance: FLUOXETINE HYDROCHLORIDE
     Indication: ANXIETY
  15. LEVOMILNACIPRAN [Suspect]
     Active Substance: LEVOMILNACIPRAN
     Indication: ANXIETY
     Dosage: UNK
     Route: 065
  16. AMITRIPTYLINE [Suspect]
     Active Substance: AMITRIPTYLINE
     Indication: ANXIETY
     Dosage: UNK
     Route: 065
  17. LURASIDONE [Suspect]
     Active Substance: LURASIDONE
     Indication: ANXIETY
     Dosage: 40 MILLIGRAM
     Route: 065
  18. ALPRAZOLAM. [Suspect]
     Active Substance: ALPRAZOLAM
     Indication: ANXIETY
     Dosage: UNK
     Route: 065
  19. VENLAFAXINE [Suspect]
     Active Substance: VENLAFAXINE HYDROCHLORIDE
     Indication: ANXIETY
     Dosage: UNK
     Route: 065
  20. FLUOXETINE [Suspect]
     Active Substance: FLUOXETINE HYDROCHLORIDE
     Indication: DEPRESSION
     Dosage: UNK
     Route: 065
  21. VILAZODONE [Suspect]
     Active Substance: VILAZODONE
     Indication: ANXIETY
     Dosage: UNK
     Route: 065
  22. ZOLPIDEM [Suspect]
     Active Substance: ZOLPIDEM TARTRATE
     Indication: ANXIETY
     Dosage: UNK
     Route: 065
     Dates: start: 201806
  23. SERTRALINE [Suspect]
     Active Substance: SERTRALINE HYDROCHLORIDE
     Indication: ANXIETY
     Dosage: UNK
     Route: 065
     Dates: start: 201806
  24. TRAZODONE [Suspect]
     Active Substance: TRAZODONE HYDROCHLORIDE
     Indication: DEPRESSION
  25. DESVENLAFAXINE. [Suspect]
     Active Substance: DESVENLAFAXINE
     Indication: DEPRESSION

REACTIONS (2)
  - Condition aggravated [Recovering/Resolving]
  - Persistent genital arousal disorder [Recovering/Resolving]

NARRATIVE: CASE EVENT DATE: 201703
